FAERS Safety Report 11512386 (Version 2)
Quarter: 2015Q3

REPORT INFORMATION
  Report Type: Spontaneous
  Country: US (occurrence: US)
  Receive Date: 20150916
  Receipt Date: 20150929
  Transmission Date: 20151125
  Serious: Yes (Hospitalization, Other)
  Sender: FDA-Public Use
  Company Number: US-SHIRE-US201511585

PATIENT
  Age: 10 Year
  Sex: Male

DRUGS (1)
  1. ELAPRASE [Suspect]
     Active Substance: IDURSULFASE
     Indication: MUCOPOLYSACCHARIDOSIS
     Dosage: 15 MG, 1X/WEEK
     Route: 041
     Dates: start: 20150429

REACTIONS (2)
  - Respiratory disorder [Unknown]
  - Croup infectious [Unknown]

NARRATIVE: CASE EVENT DATE: 20150905
